FAERS Safety Report 8964994 (Version 1)
Quarter: 2012Q4

REPORT INFORMATION
  Report Type: Report from Study
  Country: CN (occurrence: CN)
  Receive Date: 20121214
  Receipt Date: 20121214
  Transmission Date: 20130627
  Serious: Yes (Hospitalization)
  Sender: FDA-Public Use
  Company Number: CN-ROCHE-1168581

PATIENT
  Age: 59 Year
  Sex: Male
  Weight: 67.5 kg

DRUGS (2)
  1. MYCOPHENOLATE MOFETIL [Suspect]
     Indication: RENAL TRANSPLANT
     Route: 048
     Dates: start: 20070614
  2. CYCLOSPORINE A [Suspect]
     Indication: RENAL TRANSPLANT
     Route: 048
     Dates: start: 20070614

REACTIONS (1)
  - Cerebral microangiopathy [Recovering/Resolving]
